FAERS Safety Report 14147965 (Version 1)
Quarter: 2017Q4

REPORT INFORMATION
  Report Type: Spontaneous
  Country: US (occurrence: US)
  Receive Date: 20171031
  Receipt Date: 20171031
  Transmission Date: 20180321
  Serious: Yes (Other)
  Sender: FDA-Public Use
  Company Number: US-TEIKOKU PHARMA USA-TPU2017-00678

PATIENT
  Age: 79 Year
  Sex: Female
  Weight: 65.38 kg

DRUGS (13)
  1. LIDOCAINE PATCH [Suspect]
     Active Substance: LIDOCAINE
     Indication: POST HERPETIC NEURALGIA
  2. ATORVASTATIN [Concomitant]
     Active Substance: ATORVASTATIN
     Indication: BLOOD CALCIUM
  3. GABAPENTIN. [Concomitant]
     Active Substance: GABAPENTIN
     Indication: POST HERPETIC NEURALGIA
  4. LIDODERM [Suspect]
     Active Substance: LIDOCAINE
     Indication: POST HERPETIC NEURALGIA
  5. LIDODERM [Suspect]
     Active Substance: LIDOCAINE
     Indication: ARTHRITIS
     Dates: start: 2015
  6. PLAVIX [Concomitant]
     Active Substance: CLOPIDOGREL BISULFATE
     Indication: ANTICOAGULANT THERAPY
  7. ISOSORBIDE DINITRATE. [Concomitant]
     Active Substance: ISOSORBIDE DINITRATE
     Indication: HYPERTENSION
     Route: 048
  8. GABAPENTIN. [Concomitant]
     Active Substance: GABAPENTIN
     Indication: ARTHRITIS
  9. CORTISONE [Concomitant]
     Active Substance: CORTISONE\HYDROCORTISONE
     Indication: ARTHRITIS
     Dosage: 8 SHOTS OF CORTISONE IN BACK AND 4 SHOTS OF CORTISONE IN KNEE
  10. ELIQUIS [Concomitant]
     Active Substance: APIXABAN
     Indication: ANTICOAGULANT THERAPY
  11. LIDOCAINE PATCH [Suspect]
     Active Substance: LIDOCAINE
     Indication: ARTHRITIS
     Dosage: PLACE ONE PATCH ON EACH KNEE FOR 12 HOURS
     Route: 061
  12. LISINOPRIL. [Concomitant]
     Active Substance: LISINOPRIL
     Indication: HYPERTENSION
  13. STOMACH MEDS [Concomitant]

REACTIONS (5)
  - Dyspnoea [Unknown]
  - Weight decreased [Not Recovered/Not Resolved]
  - Cardiac ablation [Unknown]
  - Insomnia [Unknown]
  - Mass [Unknown]

NARRATIVE: CASE EVENT DATE: 20161025
